FAERS Safety Report 8136698-4 (Version None)
Quarter: 2012Q1

REPORT INFORMATION
  Report Type: 
  Country: None (occurrence: None)
  Receive Date: 20120214
  Receipt Date: 20120130
  Transmission Date: 20120608
  Serious: Yes (Other)
  Sender: FDA-Public Use
  Company Number: CH-WATSON-2012-02195

PATIENT
  Age: 37 Year
  Sex: Male

DRUGS (1)
  1. METHYLPHENIDATE HCL [Suspect]
     Indication: PRODUCT USED FOR UNKNOWN INDICATION
     Dosage: UNK
     Route: 013

REACTIONS (3)
  - PAIN IN EXTREMITY [None]
  - INTENTIONAL DRUG MISUSE [None]
  - EXTREMITY NECROSIS [None]
